FAERS Safety Report 6165185-8 (Version None)
Quarter: 2009Q2

REPORT INFORMATION
  Report Type: 
  Country: None (occurrence: None)
  Receive Date: 20090421
  Receipt Date: 20090421
  Transmission Date: 20091009
  Serious: Yes (Other)
  Sender: FDA-Public Use
  Company Number: None

PATIENT
  Sex: Male
  Weight: 75.7507 kg

DRUGS (1)
  1. CIPROFLOXACIN HCL [Suspect]
     Indication: PROSTATE INFECTION
     Dosage: NOT SURE BID
     Dates: start: 20090205, end: 20090215

REACTIONS (4)
  - GAIT DISTURBANCE [None]
  - SWELLING [None]
  - TENDON DISORDER [None]
  - TENDON PAIN [None]
